FAERS Safety Report 16955998 (Version 4)
Quarter: 2020Q3

REPORT INFORMATION
  Report Type: Spontaneous
  Country: US (occurrence: US)
  Receive Date: 20191024
  Receipt Date: 20200812
  Transmission Date: 20201102
  Serious: No
  Sender: FDA-Public Use
  Company Number: US-AMGEN-USASP2019175687

PATIENT
  Age: 39 Year
  Sex: Female

DRUGS (2)
  1. ENBREL [Suspect]
     Active Substance: ETANERCEPT
     Indication: PSORIASIS
     Dosage: 50 MILLIGRAM, QWK
     Route: 065
     Dates: start: 2018
  2. ENBREL [Suspect]
     Active Substance: ETANERCEPT
     Dosage: 50 MILLIGRAM, QWK
     Route: 065

REACTIONS (8)
  - Device use error [Unknown]
  - Injection site erythema [Recovered/Resolved]
  - Accidental exposure to product [Unknown]
  - Device malfunction [Unknown]
  - Hypoacusis [Unknown]
  - Injection site warmth [Recovered/Resolved]
  - Incorrect dose administered by device [Unknown]
  - Ear disorder [Unknown]

NARRATIVE: CASE EVENT DATE: 20191010
